FAERS Safety Report 6891803-2 (Version None)
Quarter: 2010Q3

REPORT INFORMATION
  Report Type: 
  Country: None (occurrence: None)
  Receive Date: 20100731
  Receipt Date: 20071005
  Transmission Date: 20110219
  Serious: No
  Sender: FDA-Public Use
  Company Number: US-PFIZER INC-2007084065

PATIENT
  Age: 45 Year
  Sex: Male

DRUGS (3)
  1. FLAGYL [Suspect]
     Indication: INFECTION
     Dates: start: 20071002, end: 20071004
  2. ALCOHOL [Interacting]
     Dates: start: 20071003, end: 20071004
  3. CIPROFLOXACIN [Concomitant]

REACTIONS (2)
  - ALCOHOL INTERACTION [None]
  - VOMITING [None]
